FAERS Safety Report 24217148 (Version 1)
Quarter: 2024Q3

REPORT INFORMATION
  Report Type: Other
  Country: IT (occurrence: IT)
  Receive Date: 20240816
  Receipt Date: 20240816
  Transmission Date: 20241017
  Serious: Yes (Disabling, Other)
  Sender: B BRAUN
  Company Number: IT-B.Braun Medical Inc.-2160532

PATIENT
  Age: 38 Year
  Sex: Female

DRUGS (1)
  1. BUPIVACAINE HYDROCHLORIDE [Suspect]
     Active Substance: BUPIVACAINE HYDROCHLORIDE
     Indication: Spinal anaesthesia

REACTIONS (3)
  - Dyspepsia [Not Recovered/Not Resolved]
  - Vocal cord paralysis [Not Recovered/Not Resolved]
  - Oral discomfort [Not Recovered/Not Resolved]
